FAERS Safety Report 9120252 (Version 3)
Quarter: 2013Q2

REPORT INFORMATION
  Report Type: Spontaneous
  Country: US (occurrence: US)
  Receive Date: 20130226
  Receipt Date: 20130412
  Transmission Date: 20140414
  Serious: Yes (Hospitalization)
  Sender: FDA-Public Use
  Company Number: US-ASTELLAS-2013US002014

PATIENT
  Age: 74 Year
  Sex: Female

DRUGS (1)
  1. PROGRAF [Suspect]
     Indication: RENAL TRANSPLANT
     Dosage: 2 MG IN THE MORNING AND 1 MG IN THE EVENING
     Dates: start: 20110104, end: 20130218

REACTIONS (2)
  - Malabsorption [Recovered/Resolved]
  - Hospitalisation [Recovered/Resolved]
